FAERS Safety Report 5577287-5 (Version None)
Quarter: 2007Q4

REPORT INFORMATION
  Report Type: 
  Country: None (occurrence: None)
  Receive Date: 20071228
  Receipt Date: 20071218
  Transmission Date: 20080405
  Serious: Yes (Life-Threatening, Hospitalization, Other)
  Sender: FDA-Public Use
  Company Number: JP-PFIZER INC-2007101625

PATIENT
  Sex: Male
  Weight: 85 kg

DRUGS (2)
  1. ZOLOFT [Suspect]
     Indication: DYSTHYMIC DISORDER
     Route: 048
     Dates: start: 20070401, end: 20071128
  2. SILECE [Suspect]
     Indication: INSOMNIA
     Route: 048
     Dates: start: 20070401, end: 20071128

REACTIONS (5)
  - ALANINE AMINOTRANSFERASE INCREASED [None]
  - ASPARTATE AMINOTRANSFERASE INCREASED [None]
  - BLOOD CREATINE PHOSPHOKINASE INCREASED [None]
  - COMA [None]
  - OVERDOSE [None]
